FAERS Safety Report 4298447-X (Version None)
Quarter: 2004Q1

REPORT INFORMATION
  Report Type: 
  Country: None (occurrence: None)
  Receive Date: 20040218
  Receipt Date: 20030730
  Transmission Date: 20041129
  Serious: Yes (Other)
  Sender: FDA-Public Use
  Company Number: US-BRISTOL-MYERS SQUIBB COMPANY-12343000

PATIENT
  Age: 42 Year
  Sex: Female

DRUGS (22)
  1. STADOL [Suspect]
     Indication: MIGRAINE
     Route: 045
  2. NUBAIN [Suspect]
     Dates: start: 19970101
  3. SOMA [Suspect]
  4. TRANXENE [Suspect]
  5. VICODIN [Concomitant]
  6. DIHYDROERGOTAMINE MESYLATE [Concomitant]
     Route: 042
  7. XANAX [Concomitant]
  8. REGLAN [Concomitant]
  9. ANAPROX [Concomitant]
  10. SANSERT [Concomitant]
  11. THORAZINE [Concomitant]
  12. LORTAB [Concomitant]
  13. PERCOCET [Concomitant]
  14. DEMEROL [Concomitant]
  15. NALBUPHINE [Concomitant]
  16. TALWIN [Concomitant]
  17. LORAZEPAM [Concomitant]
  18. SECONAL [Concomitant]
  19. TYLOX [Concomitant]
  20. FIORINAL W/CODEINE [Concomitant]
  21. DECADRON [Concomitant]
  22. ASPIRIN + OXYCODONE [Concomitant]

REACTIONS (6)
  - ANXIETY [None]
  - DEPENDENCE [None]
  - MAJOR DEPRESSION [None]
  - OVERDOSE [None]
  - SUICIDAL IDEATION [None]
  - WEIGHT INCREASED [None]
